FAERS Safety Report 4971358-X (Version None)
Quarter: 2006Q2

REPORT INFORMATION
  Report Type: 
  Country: None (occurrence: None)
  Receive Date: 20060413
  Receipt Date: 20060403
  Transmission Date: 20061013
  Serious: Yes (Other)
  Sender: FDA-Public Use
  Company Number: 2006UW05927

PATIENT
  Age: 59 Year
  Sex: Female
  Weight: 49.1 kg

DRUGS (2)
  1. ATACAND HCT [Suspect]
     Route: 048
     Dates: start: 20060403
  2. CONCOR [Concomitant]
     Route: 048
     Dates: end: 20060403

REACTIONS (1)
  - GASTRITIS [None]
